FAERS Safety Report 17998045 (Version 2)
Quarter: 2020Q3

REPORT INFORMATION
  Report Type: Report from Study
  Country: US (occurrence: US)
  Receive Date: 20200708
  Receipt Date: 20200817
  Transmission Date: 20201103
  Serious: No
  Sender: FDA-Public Use
  Company Number: NVSC2020US192815

PATIENT
  Age: 52 Year
  Sex: Female

DRUGS (1)
  1. ENTRESTO [Suspect]
     Active Substance: SACUBITRIL\VALSARTAN
     Indication: CARDIAC FAILURE CHRONIC
     Dosage: 50 MG, BID (24/26 MG)
     Route: 048
     Dates: start: 20200616

REACTIONS (5)
  - Chest discomfort [Unknown]
  - Dyspnoea [Unknown]
  - Blood pressure decreased [Unknown]
  - Throat tightness [Unknown]
  - Chest pain [Unknown]

NARRATIVE: CASE EVENT DATE: 20200616
